FAERS Safety Report 20707787 (Version 1)
Quarter: 2022Q2

REPORT INFORMATION
  Report Type: Spontaneous
  Country: US (occurrence: US)
  Receive Date: 20220413
  Receipt Date: 20220413
  Transmission Date: 20220721
  Serious: Yes (Hospitalization, Congenital Anomaly, Other)
  Sender: FDA-Public Use
  Company Number: US-BRISTOL-MYERS SQUIBB COMPANY-2022-015969

PATIENT
  Age: 79 Year
  Sex: Female

DRUGS (1)
  1. ELIQUIS [Suspect]
     Active Substance: APIXABAN
     Indication: Product used for unknown indication
     Dosage: DOSE : UNAVAILABLE;     FREQ : TAKE ONE TABLET BY MOUTH TWICE DAILY
     Route: 048

REACTIONS (5)
  - Factor V deficiency [Unknown]
  - Dyspepsia [Unknown]
  - Pelvic fracture [Unknown]
  - Thrombosis [Unknown]
  - Fall [Unknown]
